FAERS Safety Report 5597625-7 (Version None)
Quarter: 2008Q1

REPORT INFORMATION
  Report Type: 
  Country: None (occurrence: None)
  Receive Date: 20080116
  Receipt Date: 20080104
  Transmission Date: 20080703
  Serious: Yes (Hospitalization)
  Sender: FDA-Public Use
  Company Number: 2008BI000797

PATIENT
  Age: 57 Year
  Sex: Female

DRUGS (3)
  1. AVONEX [Suspect]
     Indication: MULTIPLE SCLEROSIS
     Dosage: 1 , QW; IM
     Route: 030
     Dates: start: 20050301
  2. FLUOXETINE [Concomitant]
  3. PULSOTHERAPY [Concomitant]

REACTIONS (3)
  - DIZZINESS [None]
  - FALL [None]
  - INFLUENZA [None]
